FAERS Safety Report 7530339-2 (Version None)
Quarter: 2011Q2

REPORT INFORMATION
  Report Type: 
  Country: None (occurrence: None)
  Receive Date: 20110531
  Receipt Date: 20110318
  Transmission Date: 20111010
  Serious: Yes (Hospitalization)
  Sender: FDA-Public Use
  Company Number: 2011MA006340

PATIENT
  Age: 46 Year
  Sex: Male

DRUGS (4)
  1. NILOTINIB (NO PREF. NAME) [Suspect]
     Dosage: 300 MGI, BID
  2. NILOTINIB (NO PREF. NAME) [Suspect]
     Indication: CHRONIC MYELOID LEUKAEMIA
     Dosage: 300 MG, BID,
  3. PANTOPRAZOLE SODIUM [Suspect]
     Indication: GASTRITIS
     Dosage: 40 MG, QD
  4. NILOTINIB (NO PREF. NAME) [Suspect]
     Dosage: 300 MG, BID

REACTIONS (6)
  - PLATELET COUNT INCREASED [None]
  - ABDOMINAL PAIN [None]
  - EOSINOPHIL COUNT INCREASED [None]
  - WHITE BLOOD CELL COUNT INCREASED [None]
  - NAUSEA [None]
  - CONSTIPATION [None]
